FAERS Safety Report 10456645 (Version 2)
Quarter: 2014Q4

REPORT INFORMATION
  Report Type: Spontaneous
  Country: CA (occurrence: CA)
  Receive Date: 20140916
  Receipt Date: 20141001
  Transmission Date: 20150528
  Serious: Yes (Other)
  Sender: FDA-Public Use
  Company Number: CA-PFIZER INC-2014253838

PATIENT
  Age: 5 Day
  Sex: Male
  Weight: 2.82 kg

DRUGS (5)
  1. BUPIVACAINE [Concomitant]
     Active Substance: BUPIVACAINE
     Dosage: 0.75%, 1.3 CC
     Route: 064
  2. FENTANYL. [Concomitant]
     Active Substance: FENTANYL
     Dosage: 15 UG, UNK
     Route: 064
  3. DOXYLAMINE SUCCINATE [Concomitant]
     Active Substance: DOXYLAMINE SUCCINATE
     Dosage: UNK
     Route: 064
  4. MORPHINE SULFATE. [Suspect]
     Active Substance: MORPHINE SULFATE
     Indication: SPINAL ANAESTHESIA
     Dosage: 150 UG, SINGLE
     Route: 064
  5. ONDANSETRON [Concomitant]
     Active Substance: ONDANSETRON
     Dosage: UNK
     Route: 064

REACTIONS (2)
  - Maternal exposure during pregnancy [Recovered/Resolved]
  - Oral herpes [Recovered/Resolved]
